FAERS Safety Report 25346663 (Version 1)
Quarter: 2025Q2

REPORT INFORMATION
  Report Type: Spontaneous
  Country: CA (occurrence: CA)
  Receive Date: 20250522
  Receipt Date: 20250522
  Transmission Date: 20250717
  Serious: Yes (Other)
  Sender: AUROBINDO
  Company Number: CA-AUROBINDO-AUR-APL-2022-039453

PATIENT
  Age: 34 Year
  Sex: Female

DRUGS (3)
  1. AMPICILLIN [Suspect]
     Active Substance: AMPICILLIN
     Indication: Premature labour
     Route: 042
  2. GENTAMICIN [Suspect]
     Active Substance: GENTAMICIN
     Indication: Premature labour
     Route: 042
  3. BETAMETHASONE [Suspect]
     Active Substance: BETAMETHASONE
     Indication: Premature labour
     Route: 030

REACTIONS (4)
  - Maternal exposure during pregnancy [Unknown]
  - Delivery [Unknown]
  - Premature delivery [Unknown]
  - Product use in unapproved indication [Unknown]
